FAERS Safety Report 10558985 (Version 2)
Quarter: 2014Q4

REPORT INFORMATION
  Report Type: Report from Study
  Country: PL (occurrence: PL)
  Receive Date: 20141103
  Receipt Date: 20141107
  Transmission Date: 20150529
  Serious: Yes (Hospitalization)
  Sender: FDA-Public Use
  Company Number: PL-AMGEN-POLCT2014083154

PATIENT
  Age: 81 Year
  Sex: Female
  Weight: 65 kg

DRUGS (15)
  1. NITRENDYPINA [Concomitant]
     Dosage: 20 MG, UNK
     Route: 048
     Dates: start: 2010
  2. KALDYUM [Concomitant]
     Active Substance: POTASSIUM CHLORIDE
     Dosage: 315 MG, UNK
     Route: 048
     Dates: start: 2010
  3. VITAMIN D                          /00107901/ [Concomitant]
     Active Substance: ERGOCALCIFEROL
     Dosage: 800 IU, UNK
     Route: 048
     Dates: start: 20120914
  4. DOXANORM [Concomitant]
     Dosage: 4 MG, UNK
     Route: 048
     Dates: start: 2011
  5. CALCIUM [Concomitant]
     Active Substance: CALCIUM
     Dosage: 500 MG, UNK
     Route: 048
     Dates: start: 20120914
  6. AMG 785 [Suspect]
     Active Substance: ROMOSOZUMAB
     Indication: OSTEOPOROSIS POSTMENOPAUSAL
     Dosage: UNK
     Route: 058
     Dates: start: 20121023, end: 20130923
  7. DIUVER [Concomitant]
     Active Substance: TORSEMIDE
     Dosage: 10 MG, UNK
     Route: 048
     Dates: start: 2010
  8. DENOSUMAB [Suspect]
     Active Substance: DENOSUMAB
     Indication: OSTEOPOROSIS POSTMENOPAUSAL
     Dosage: UNK
     Route: 058
     Dates: start: 20131022
  9. GLUCOPHAGE [Concomitant]
     Active Substance: METFORMIN HYDROCHLORIDE
     Dosage: 500 MG, UNK
     Route: 048
     Dates: start: 2002
  10. NITRENDYPINA [Concomitant]
     Route: 048
     Dates: start: 20131112
  11. ACCUPRO [Concomitant]
     Active Substance: QUINAPRIL HYDROCHLORIDE
     Dosage: 20 MG, UNK
     Route: 048
     Dates: start: 2010
  12. ACARD [Concomitant]
     Active Substance: ASPIRIN
     Dosage: 75 MG, UNK
     Route: 048
     Dates: start: 2010
  13. EBIVOL [Concomitant]
     Dosage: 2.5 MG, UNK
     Route: 048
     Dates: start: 2010
  14. ATROX [Concomitant]
     Dosage: 20 MG, UNK
     Route: 048
     Dates: start: 2010
  15. TERTENSIF [Concomitant]
     Dosage: 1.5 MG, UNK
     Route: 048
     Dates: start: 20131016

REACTIONS (1)
  - Cataract [Recovered/Resolved]

NARRATIVE: CASE EVENT DATE: 201403
